FAERS Safety Report 9698603 (Version 2)
Quarter: 2014Q2

REPORT INFORMATION
  Report Type: Spontaneous
  Country: JP (occurrence: JP)
  Receive Date: 20131120
  Receipt Date: 20140429
  Transmission Date: 20141212
  Serious: Yes (Other)
  Sender: FDA-Public Use
  Company Number: JP-VIIV HEALTHCARE LIMITED-B0945855A

PATIENT
  Age: 6 Decade
  Sex: Male

DRUGS (4)
  1. CELSENTRI [Suspect]
     Indication: HIV INFECTION
     Dosage: 150MG TWICE PER DAY
     Route: 048
  2. VALIXA [Suspect]
     Indication: PRODUCT USED FOR UNKNOWN INDICATION
     Route: 048
  3. TRUVADA [Concomitant]
     Indication: HIV INFECTION
     Dosage: 1IUAX PER DAY
     Route: 048
  4. PREZISTA NAIVE [Concomitant]
     Indication: HIV INFECTION
     Dosage: 2IUAX PER DAY
     Route: 048

REACTIONS (1)
  - Pancytopenia [Recovered/Resolved]
